FAERS Safety Report 7356776-7 (Version None)
Quarter: 2011Q1

REPORT INFORMATION
  Report Type: 
  Country: None (occurrence: None)
  Receive Date: 20110316
  Receipt Date: 20110309
  Transmission Date: 20110831
  Serious: Yes (Other)
  Sender: FDA-Public Use
  Company Number: DE-AMGEN-DEUSP2010001513

PATIENT
  Age: 36 Year
  Sex: Female

DRUGS (1)
  1. NPLATE [Suspect]
     Indication: IDIOPATHIC THROMBOCYTOPENIC PURPURA
     Dosage: UNK
     Dates: start: 20090308, end: 20100916

REACTIONS (2)
  - BONE MARROW RETICULIN FIBROSIS [None]
  - BIOPSY BONE MARROW ABNORMAL [None]
